FAERS Safety Report 15862019 (Version 1)
Quarter: 2019Q1

REPORT INFORMATION
  Report Type: Spontaneous
  Country: US (occurrence: US)
  Receive Date: 20190124
  Receipt Date: 20190124
  Transmission Date: 20190417
  Serious: Yes (Other)
  Sender: FDA-Public Use
  Company Number: US-LEXICON PHARMACEUTICALS, INC-19-1606-00078

PATIENT
  Sex: Female

DRUGS (2)
  1. SANDOSTATIN [Concomitant]
     Active Substance: OCTREOTIDE ACETATE
  2. TELOTRISTAT ETHYL [Suspect]
     Active Substance: TELOTRISTAT ETHYL
     Indication: CARCINOID SYNDROME
     Route: 048

REACTIONS (6)
  - Breast cancer metastatic [Unknown]
  - Gastrooesophageal reflux disease [Unknown]
  - Myelodysplastic syndrome [Unknown]
  - Diarrhoea [Unknown]
  - Granulocyte count increased [Unknown]
  - Pancytopenia [Unknown]
